FAERS Safety Report 6927517-X (Version None)
Quarter: 2010Q3

REPORT INFORMATION
  Report Type: 
  Country: None (occurrence: None)
  Receive Date: 20100817
  Receipt Date: 20100806
  Transmission Date: 20110219
  Serious: Yes (Other)
  Sender: FDA-Public Use
  Company Number: FR-EISAI INC.-E7273-00174-SPO-FR

PATIENT
  Sex: Female
  Weight: 102 kg

DRUGS (7)
  1. TARGRETIN [Suspect]
     Route: 048
     Dates: start: 20100630, end: 20100722
  2. TARGRETIN [Suspect]
     Route: 048
     Dates: start: 20100723, end: 20100728
  3. LANTUS [Concomitant]
     Route: 058
  4. ACTRAPID [Concomitant]
     Dosage: 20 - 24 IU
     Route: 058
  5. BISINOPRIL 20 [Concomitant]
  6. KARDEGIC 75 [Concomitant]
     Dosage: 1 BAG
     Route: 048
  7. TAHOR 10 [Concomitant]
     Indication: DYSLIPIDAEMIA
     Dosage: 1 BAG
     Route: 048

REACTIONS (1)
  - MALIGNANT NEOPLASM PROGRESSION [None]
